FAERS Safety Report 7207032-9 (Version None)
Quarter: 2011Q1

REPORT INFORMATION
  Report Type: 
  Country: None (occurrence: None)
  Receive Date: 20110103
  Receipt Date: 20101222
  Transmission Date: 20110831
  Serious: Yes (Hospitalization)
  Sender: FDA-Public Use
  Company Number: B0687169A

PATIENT
  Sex: Male
  Weight: 80 kg

DRUGS (5)
  1. OMEPRAZOLE [Concomitant]
     Route: 048
  2. CEPHALEXIN [Concomitant]
     Route: 048
  3. COMBODART [Suspect]
     Indication: BENIGN PROSTATIC HYPERPLASIA
     Dosage: .5MG PER DAY
     Route: 048
  4. NAPROXEN [Concomitant]
     Route: 048
  5. GLUCOSAMINE [Concomitant]
     Route: 048

REACTIONS (2)
  - CIRCULATORY COLLAPSE [None]
  - FEELING ABNORMAL [None]
